FAERS Safety Report 23646673 (Version 6)
Quarter: 2024Q2

REPORT INFORMATION
  Report Type: Report from Study
  Country: US (occurrence: US)
  Receive Date: 20240319
  Receipt Date: 20240522
  Transmission Date: 20240716
  Serious: Yes (Hospitalization, Other)
  Sender: FDA-Public Use
  Company Number: US-ABBVIE-5680701

PATIENT
  Age: 65 Year
  Sex: Male
  Weight: 80 kg

DRUGS (15)
  1. RINVOQ [Suspect]
     Active Substance: UPADACITINIB
     Indication: Crohn^s disease
     Dosage: FORM STRENGTH: 15 MG
     Route: 048
     Dates: start: 20231103, end: 20231222
  2. RINVOQ [Suspect]
     Active Substance: UPADACITINIB
     Indication: Crohn^s disease
     Dosage: FOR 12 WEEKS?FORM STRENGTH: 45 MG
     Route: 048
     Dates: start: 20230803, end: 20231103
  3. RINVOQ [Suspect]
     Active Substance: UPADACITINIB
     Indication: Crohn^s disease
     Route: 048
     Dates: start: 20230915
  4. RINVOQ [Suspect]
     Active Substance: UPADACITINIB
     Indication: Crohn^s disease
     Dosage: FORM STRENGTH: 15 MG
     Route: 048
     Dates: start: 20240102
  5. VITAMIN D [Concomitant]
     Active Substance: VITAMIN D NOS
     Indication: Product used for unknown indication
     Dosage: FREQUENCY TEXT: 1/DAY
  6. HYDROXYZINE [Concomitant]
     Active Substance: HYDROXYZINE HYDROCHLORIDE
     Indication: Sleep disorder
     Dosage: FREQUENCY TEXT: 2/DAY
     Route: 048
  7. ASPIRIN [Concomitant]
     Active Substance: ASPIRIN
     Indication: Product used for unknown indication
     Dosage: FREQUENCY TEXT: 1/DAY
     Route: 048
  8. CEFPODOXIME [Concomitant]
     Active Substance: CEFPODOXIME
     Indication: Infection
     Dates: start: 20231223, end: 20240102
  9. MELOXICAM [Concomitant]
     Active Substance: MELOXICAM
     Indication: Pain
     Dosage: FREQUENCY TEXT: 1/DAY
     Dates: start: 20231128, end: 20231204
  10. LOSARTAN [Concomitant]
     Active Substance: LOSARTAN
     Indication: Hypertension
     Dosage: FREQUENCY TEXT: 1/DAY
     Route: 048
  11. IRON [Concomitant]
     Active Substance: IRON
     Indication: Product used for unknown indication
     Route: 048
  12. ENTYVIO [Concomitant]
     Active Substance: VEDOLIZUMAB
     Indication: Crohn^s disease
  13. DICYCLOMINE [Concomitant]
     Active Substance: DICYCLOMINE HYDROCHLORIDE
     Indication: Product used for unknown indication
     Dosage: FREQUENCY - 2-4/DAY?STRENGTH- 10 MG
     Route: 048
  14. CHOLECALCIFEROL [Concomitant]
     Active Substance: CHOLECALCIFEROL
     Indication: Product used for unknown indication
     Dosage: 25 MCG (1,000 UNIT)
     Route: 048
  15. FERROUS SULFATE [Concomitant]
     Active Substance: FERROUS SULFATE
     Indication: Product used for unknown indication
     Dosage: 325 MG (65 MG IRON)

REACTIONS (19)
  - Nephrolithiasis [Recovered/Resolved]
  - Post procedural infection [Recovered/Resolved]
  - Ureterolithiasis [Recovered/Resolved]
  - Calculus urethral [Recovered/Resolved]
  - Calculus urethral [Recovered/Resolved]
  - Urosepsis [Recovered/Resolved]
  - Muscular weakness [Recovering/Resolving]
  - Pain in extremity [Recovering/Resolving]
  - Chromaturia [Unknown]
  - Arthralgia [Recovering/Resolving]
  - Renal cyst [Unknown]
  - Prostatomegaly [Unknown]
  - Diverticulum intestinal [Unknown]
  - Hydronephrosis [Recovered/Resolved]
  - Blood creatine phosphokinase increased [Unknown]
  - Obstructive nephropathy [Recovered/Resolved]
  - Urinary tract obstruction [Recovered/Resolved]
  - Myalgia [Recovering/Resolving]
  - Blood cholesterol increased [Unknown]

NARRATIVE: CASE EVENT DATE: 20230805
